FAERS Safety Report 15718542 (Version 1)
Quarter: 2018Q4

REPORT INFORMATION
  Report Type: Spontaneous
  Country: US (occurrence: US)
  Receive Date: 20181213
  Receipt Date: 20181213
  Transmission Date: 20190205
  Serious: No
  Sender: FDA-Public Use
  Company Number: None

PATIENT
  Age: 73 Year
  Sex: Female

DRUGS (5)
  1. LIVALO 2MG [Concomitant]
  2. BENAZEPRIL 40MG [Concomitant]
  3. METOPROLOL ER SUCCINATE [Suspect]
     Active Substance: METOPROLOL SUCCINATE
     Route: 048
     Dates: start: 20181016, end: 20181210
  4. HYDRALAZINE 10MG [Concomitant]
     Active Substance: HYDRALAZINE HYDROCHLORIDE
  5. NIFEDIPINE 30MG [Concomitant]

REACTIONS (1)
  - Drug ineffective [None]

NARRATIVE: CASE EVENT DATE: 20181016
